FAERS Safety Report 20924617 (Version 2)
Quarter: 2022Q2

REPORT INFORMATION
  Report Type: Spontaneous
  Country: US (occurrence: US)
  Receive Date: 20220607
  Receipt Date: 20220608
  Transmission Date: 20220720
  Serious: Yes (Other)
  Sender: FDA-Public Use
  Company Number: US-SPECGX-T202201275

PATIENT
  Sex: Female

DRUGS (2)
  1. OXYCODONE [Suspect]
     Active Substance: OXYCODONE
     Indication: Back pain
     Dosage: UNK
     Route: 065
  2. VARENICLINE [Suspect]
     Active Substance: VARENICLINE
     Indication: Vision blurred
     Dosage: 0.6 MG/ML
     Route: 045

REACTIONS (3)
  - Rectal haemorrhage [Unknown]
  - Constipation [Unknown]
  - Adverse event [Unknown]
